FAERS Safety Report 6185809-9 (Version None)
Quarter: 2009Q2

REPORT INFORMATION
  Report Type: 
  Country: None (occurrence: None)
  Receive Date: 20090511
  Receipt Date: 20090501
  Transmission Date: 20091009
  Serious: Yes (Hospitalization)
  Sender: FDA-Public Use
  Company Number: A0731274A

PATIENT
  Sex: Male
  Weight: 99.1 kg

DRUGS (10)
  1. AVANDIA [Suspect]
     Dosage: 8MG PER DAY
     Route: 048
     Dates: start: 20010119, end: 20060801
  2. GLUCOPHAGE [Concomitant]
     Dosage: 1000MG TWICE PER DAY
     Dates: start: 20010101
  3. METFORMIN HCL [Concomitant]
     Dates: start: 20010101
  4. GLUCOTROL XL [Concomitant]
     Dosage: 5MG PER DAY
     Dates: start: 20020101, end: 20020801
  5. ATENOLOL [Concomitant]
  6. NORVASC [Concomitant]
  7. HYDROCHLOROTHIAZIDE [Concomitant]
  8. DIOVAN [Concomitant]
  9. ZOCOR [Concomitant]
  10. ASPIRIN [Concomitant]

REACTIONS (4)
  - CARDIAC FAILURE CONGESTIVE [None]
  - CORONARY ARTERY DISEASE [None]
  - INJURY [None]
  - PAIN [None]
